FAERS Safety Report 17664582 (Version 1)
Quarter: 2020Q2

REPORT INFORMATION
  Report Type: Spontaneous
  Country: IT (occurrence: IT)
  Receive Date: 20200414
  Receipt Date: 20200414
  Transmission Date: 20200713
  Serious: Yes (Other)
  Sender: FDA-Public Use
  Company Number: IT-BAYER-2020-060831

PATIENT
  Age: 50 Year
  Sex: Female

DRUGS (2)
  1. CIPROXIN 500 MG [Suspect]
     Active Substance: CIPROFLOXACIN
     Indication: ENTEROCOCCAL INFECTION
     Dosage: 500 MG
     Dates: start: 2020, end: 2020
  2. CIPROXIN 250 MG [Suspect]
     Active Substance: CIPROFLOXACIN
     Indication: ENTEROCOCCAL INFECTION
     Dosage: 250 MG
     Dates: start: 2020, end: 20200313

REACTIONS (7)
  - Hyperhidrosis [None]
  - Headache [None]
  - Intentional product use issue [None]
  - Hypoglycaemia [None]
  - Peripheral coldness [None]
  - Bradycardia [None]
  - Tachycardia [None]

NARRATIVE: CASE EVENT DATE: 2020
